FAERS Safety Report 10199696 (Version 1)
Quarter: 2014Q2

REPORT INFORMATION
  Report Type: Spontaneous
  Country: FR (occurrence: FR)
  Receive Date: 20140527
  Receipt Date: 20140527
  Transmission Date: 20141212
  Serious: Yes (Death, Congenital Anomaly)
  Sender: FDA-Public Use
  Company Number: FR-UCBSA-121676

PATIENT
  Sex: 0

DRUGS (2)
  1. KEPPRA [Suspect]
     Indication: EPILEPSY
     Route: 064
  2. LAMICTAL [Concomitant]

REACTIONS (4)
  - Foetal death [Fatal]
  - Limb deformity [Fatal]
  - Pierre Robin syndrome [Fatal]
  - Foetal exposure during pregnancy [Recovered/Resolved]
